FAERS Safety Report 6871981-1 (Version None)
Quarter: 2010Q3

REPORT INFORMATION
  Report Type: 
  Country: None (occurrence: None)
  Receive Date: 20100723
  Receipt Date: 20100713
  Transmission Date: 20110219
  Serious: Yes (Other)
  Sender: FDA-Public Use
  Company Number: US-PFIZER INC-2010088063

PATIENT
  Age: 57 Year
  Sex: Female

DRUGS (7)
  1. XANAX [Suspect]
     Indication: ANXIETY DISORDER
     Dosage: 1 MG, AS NEEDED
     Route: 048
     Dates: start: 20050101
  2. XANAX [Suspect]
     Indication: PANIC ATTACK
  3. XANAX [Suspect]
     Indication: STRESS
  4. XANAX [Suspect]
     Indication: ANXIETY
  5. CYMBALTA [Suspect]
     Dosage: UNK
  6. PROZAC [Suspect]
     Dosage: UNK
  7. PRISTIQ [Concomitant]
     Dosage: 50 MG, UNK
     Dates: start: 20100713

REACTIONS (8)
  - BLOOD CHOLESTEROL ABNORMAL [None]
  - CLAUSTROPHOBIA [None]
  - DEPRESSION [None]
  - DRUG INEFFECTIVE [None]
  - HYPERHIDROSIS [None]
  - HYPERTENSION [None]
  - THYROID DISORDER [None]
  - WEIGHT INCREASED [None]
